FAERS Safety Report 8847659 (Version 1)
Quarter: 2012Q4

REPORT INFORMATION
  Report Type: Report from Study
  Country: BE (occurrence: BE)
  Receive Date: 20121018
  Receipt Date: 20121018
  Transmission Date: 20130627
  Serious: Yes (Other)
  Sender: FDA-Public Use
  Company Number: BE-B.I. PHARMACEUTICALS,INC./RIDGEFIELD-2012-BL-00436BL

PATIENT
  Sex: Male
  Weight: 120 kg

DRUGS (6)
  1. PRADAXA [Suspect]
     Indication: ATRIAL FIBRILLATION
     Dosage: 300 mg
     Route: 048
  2. AMLODIPINE [Concomitant]
  3. NOBITEN [Concomitant]
  4. TRITACE [Concomitant]
  5. TERAZOSABB [Concomitant]
  6. CORDARONE [Concomitant]

REACTIONS (4)
  - Colon neoplasm [Unknown]
  - Haemoglobin decreased [Not Recovered/Not Resolved]
  - Rectal haemorrhage [Recovered/Resolved]
  - Renal failure [Unknown]
